FAERS Safety Report 8699565 (Version 2)
Quarter: 2012Q4

REPORT INFORMATION
  Report Type: Spontaneous
  Country: US (occurrence: None)
  Receive Date: 20120717
  Receipt Date: 20120905
  Transmission Date: 20130627
  Serious: Yes (Death, Disabling)
  Sender: FDA-Public Use
  Company Number: DSA_58438_2012

PATIENT
  Age: 89 Year
  Sex: Female

DRUGS (1)
  1. XENAZINE [Suspect]
     Indication: DYSKINESIA
     Route: 048
     Dates: start: 201102, end: 201207

REACTIONS (3)
  - Death [None]
  - Pneumonia [None]
  - Respiratory failure [None]
